FAERS Safety Report 4539003-5 (Version None)
Quarter: 2004Q4

REPORT INFORMATION
  Report Type: 
  Country: None (occurrence: None)
  Receive Date: 20041222
  Receipt Date: 20041206
  Transmission Date: 20050328
  Serious: Yes (Hospitalization, Other)
  Sender: FDA-Public Use
  Company Number: USA041285609

PATIENT
  Sex: Male

DRUGS (2)
  1. ZYPREXA [Suspect]
  2. DESYREL [Concomitant]

REACTIONS (1)
  - RENAL FAILURE [None]
